FAERS Safety Report 19278856 (Version 1)
Quarter: 2021Q2

REPORT INFORMATION
  Report Type: Spontaneous
  Country: US (occurrence: US)
  Receive Date: 20210520
  Receipt Date: 20210520
  Transmission Date: 20210717
  Serious: Yes (Other)
  Sender: FDA-Public Use
  Company Number: US-ACCORD-225523

PATIENT
  Age: 8 Year
  Sex: Male

DRUGS (12)
  1. CEFIXIME/CEFIXIME TRIHYDRATE [Concomitant]
     Active Substance: CEFIXIME
     Indication: PROPHYLAXIS AGAINST DIARRHOEA
  2. ECULIZUMAB [Concomitant]
     Active Substance: ECULIZUMAB
     Indication: THROMBOTIC MICROANGIOPATHY
  3. SARGRAMOSTIM [Suspect]
     Active Substance: SARGRAMOSTIM
  4. IRINOTECAN [Suspect]
     Active Substance: IRINOTECAN
     Indication: METASTASES TO BONE
  5. TEMOZOLOMIDE. [Suspect]
     Active Substance: TEMOZOLOMIDE
     Indication: METASTASES TO BONE
  6. DINUTUXIMAB [Suspect]
     Active Substance: DINUTUXIMAB
     Indication: NEUROBLASTOMA RECURRENT
  7. IRINOTECAN [Suspect]
     Active Substance: IRINOTECAN
     Indication: NEUROBLASTOMA RECURRENT
  8. GRANULOCYTE?MACROPHAGE COLONY?STIMULATING FACTOR [Suspect]
     Active Substance: GRANULOCYTE-MACROPHAGE COLONY-STIMULATING FACTOR
     Indication: NEUROBLASTOMA RECURRENT
  9. GRANULOCYTE?MACROPHAGE COLONY?STIMULATING FACTOR [Suspect]
     Active Substance: GRANULOCYTE-MACROPHAGE COLONY-STIMULATING FACTOR
     Indication: METASTASES TO BONE
  10. TEMOZOLOMIDE. [Suspect]
     Active Substance: TEMOZOLOMIDE
     Indication: NEUROBLASTOMA RECURRENT
  11. DINUTUXIMAB [Suspect]
     Active Substance: DINUTUXIMAB
     Indication: METASTASES TO BONE
  12. MOLGRAMOSTIM [Suspect]
     Active Substance: MOLGRAMOSTIM

REACTIONS (3)
  - Off label use [Unknown]
  - Pyrexia [Unknown]
  - Clostridium difficile colitis [Unknown]
